FAERS Safety Report 4963175-1 (Version None)
Quarter: 2006Q1

REPORT INFORMATION
  Report Type: 
  Country: None (occurrence: None)
  Receive Date: 20060331
  Receipt Date: 20040818
  Transmission Date: 20060701
  Serious: Yes (Hospitalization)
  Sender: FDA-Public Use
  Company Number: STA-AE-04-021

PATIENT
  Age: 47 Year
  Sex: Male

DRUGS (1)
  1. NAPROXEN [Suspect]
     Indication: HYPOAESTHESIA
     Dosage: 500 MG BID, ORAL
     Route: 048
     Dates: start: 20040701, end: 20040807

REACTIONS (3)
  - HAEMATEMESIS [None]
  - HAEMATOCHEZIA [None]
  - HAEMORRHAGE [None]
